FAERS Safety Report 5155087-8 (Version None)
Quarter: 2006Q4

REPORT INFORMATION
  Report Type: 
  Country: None (occurrence: None)
  Receive Date: 20061121
  Receipt Date: 20061109
  Transmission Date: 20070319
  Serious: Yes (Other)
  Sender: FDA-Public Use
  Company Number: GR-GLAXOSMITHKLINE-B0446767A

PATIENT
  Age: 33 Year
  Sex: Male

DRUGS (2)
  1. LITHIUM CARBONATE [Suspect]
     Indication: BIPOLAR DISORDER
     Dosage: 900MG PER DAY
     Route: 065
  2. CITALOPRAM HYDROBROMIDE [Concomitant]
     Dosage: 40MG PER DAY
     Route: 065

REACTIONS (7)
  - ASTHENIA [None]
  - DECREASED ACTIVITY [None]
  - FALL [None]
  - FATIGUE [None]
  - IMPAIRED WORK ABILITY [None]
  - MYASTHENIA GRAVIS [None]
  - THYMUS ENLARGEMENT [None]
